FAERS Safety Report 5312866-1 (Version None)
Quarter: 2007Q2

REPORT INFORMATION
  Report Type: 
  Country: None (occurrence: None)
  Receive Date: 20070430
  Receipt Date: 20070423
  Transmission Date: 20071010
  Serious: Yes (Other)
  Sender: FDA-Public Use
  Company Number: JP-PFIZER INC-2007029909

PATIENT
  Age: 50 Year
  Sex: Female

DRUGS (1)
  1. HALCION [Suspect]
     Route: 048
     Dates: end: 20070101

REACTIONS (4)
  - BLOOD CREATINE PHOSPHOKINASE INCREASED [None]
  - CARBON MONOXIDE POISONING [None]
  - OVERDOSE [None]
  - SUICIDAL IDEATION [None]
